FAERS Safety Report 5918775-9 (Version None)
Quarter: 2008Q4

REPORT INFORMATION
  Report Type: 
  Country: None (occurrence: None)
  Receive Date: 20081015
  Receipt Date: 20080923
  Transmission Date: 20090506
  Serious: Yes (Other)
  Sender: FDA-Public Use
  Company Number: US-BAYER-200813589NA

PATIENT
  Sex: Female
  Weight: 137 kg

DRUGS (1)
  1. MAGNEVIST [Suspect]
     Indication: NUCLEAR MAGNETIC RESONANCE IMAGING BRAIN
     Dates: start: 20041209, end: 20041209

REACTIONS (6)
  - FIBROSIS [None]
  - HYPERKERATOSIS [None]
  - NEOVASCULARISATION [None]
  - NEPHROGENIC SYSTEMIC FIBROSIS [None]
  - SKIN LESION [None]
  - SKIN NODULE [None]
